FAERS Safety Report 22080990 (Version 1)
Quarter: 2023Q1

REPORT INFORMATION
  Report Type: Spontaneous
  Country: CA (occurrence: CA)
  Receive Date: 20230309
  Receipt Date: 20230309
  Transmission Date: 20230417
  Serious: Yes (Other)
  Sender: FDA-Public Use
  Company Number: CA-BAUSCH-BL-2023-003714

PATIENT
  Age: 45 Year
  Sex: Female

DRUGS (6)
  1. CICLOPIROX [Suspect]
     Active Substance: CICLOPIROX
     Indication: Trichophytosis
     Route: 061
  2. CICLOPIROX [Suspect]
     Active Substance: CICLOPIROX
     Indication: Fungal infection
  3. HYDROCORTISONE [Suspect]
     Active Substance: HYDROCORTISONE
     Indication: Trichophytosis
     Route: 061
  4. HYDROCORTISONE [Suspect]
     Active Substance: HYDROCORTISONE
     Indication: Fungal infection
  5. CLOTRIMAZOLE [Suspect]
     Active Substance: CLOTRIMAZOLE
     Indication: Trichophytosis
     Route: 065
  6. CLOTRIMAZOLE [Suspect]
     Active Substance: CLOTRIMAZOLE
     Indication: Fungal infection
     Route: 065

REACTIONS (2)
  - Fungal infection [Unknown]
  - Drug ineffective [Unknown]
